FAERS Safety Report 10210491 (Version 1)
Quarter: 2014Q2

REPORT INFORMATION
  Report Type: Spontaneous
  Country: IT (occurrence: IT)
  Receive Date: 20140602
  Receipt Date: 20140602
  Transmission Date: 20141212
  Serious: Yes (Other)
  Sender: FDA-Public Use
  Company Number: IT-WATSON-2014-11235

PATIENT
  Age: 39 Year
  Sex: Male

DRUGS (1)
  1. TOPIRAMATE (UNKNOWN) [Suspect]
     Indication: GENERALISED TONIC-CLONIC SEIZURE
     Dosage: 50 MG, DAILY
     Route: 048
     Dates: start: 20140310, end: 20140313

REACTIONS (1)
  - Confusional state [Recovering/Resolving]
